FAERS Safety Report 16393384 (Version 1)
Quarter: 2019Q2

REPORT INFORMATION
  Report Type: Spontaneous
  Country: US (occurrence: US)
  Receive Date: 20190605
  Receipt Date: 20190605
  Transmission Date: 20190711
  Serious: Yes (Other)
  Sender: FDA-Public Use
  Company Number: US-PFIZER INC-2019237783

PATIENT
  Age: 34 Year
  Sex: Female
  Weight: 61.23 kg

DRUGS (5)
  1. LYRICA [Suspect]
     Active Substance: PREGABALIN
     Indication: PAIN
  2. LYRICA [Suspect]
     Active Substance: PREGABALIN
     Indication: FIBROMYALGIA
     Dosage: 75 MG, 2X/DAY
  3. GABAPENTIN. [Concomitant]
     Active Substance: GABAPENTIN
     Indication: PAIN
     Dosage: 300 MG, 3X/DAY
     Dates: start: 201901
  4. LYRICA [Suspect]
     Active Substance: PREGABALIN
     Indication: PAIN IN EXTREMITY
  5. LYRICA [Suspect]
     Active Substance: PREGABALIN
     Indication: ARTHRALGIA

REACTIONS (8)
  - Central nervous system lesion [Unknown]
  - Alopecia [Unknown]
  - Muscular weakness [Unknown]
  - Dysphemia [Unknown]
  - Onycholysis [Unknown]
  - Systemic lupus erythematosus [Not Recovered/Not Resolved]
  - Rash [Unknown]
  - Migraine [Unknown]

NARRATIVE: CASE EVENT DATE: 2011
